FAERS Safety Report 7146364-X (Version None)
Quarter: 2010Q4

REPORT INFORMATION
  Report Type: 
  Country: None (occurrence: None)
  Receive Date: 20101208
  Receipt Date: 20091123
  Transmission Date: 20110411
  Serious: No
  Sender: FDA-Public Use
  Company Number: US-BRISTOL-MYERS SQUIBB COMPANY-14869309

PATIENT

DRUGS (1)
  1. PRAVACHOL [Suspect]
     Dosage: DURATION OF THERAPY=2 MONTHS FOR 20MG,THEN DOSE VAULE INCREASED TO 40MG.

REACTIONS (1)
  - DRUG INEFFECTIVE [None]
